FAERS Safety Report 7888163-7 (Version None)
Quarter: 2011Q4

REPORT INFORMATION
  Report Type: 
  Country: None (occurrence: None)
  Receive Date: 20111103
  Receipt Date: 20111026
  Transmission Date: 20120403
  Serious: Yes (Hospitalization, Other)
  Sender: FDA-Public Use
  Company Number: US-JNJFOC-20090709034

PATIENT
  Sex: Male
  Weight: 103.3 kg

DRUGS (16)
  1. DOXORUBICIN HCL [Suspect]
     Route: 042
     Dates: end: 20090723
  2. VELCADE [Suspect]
     Route: 042
  3. VELCADE [Suspect]
     Indication: DIFFUSE LARGE B-CELL LYMPHOMA
     Route: 042
  4. RITUXAN [Suspect]
     Route: 042
     Dates: start: 20090629, end: 20090723
  5. DOXORUBICIN HCL [Suspect]
     Route: 042
  6. VELCADE [Suspect]
     Route: 042
  7. VELCADE [Suspect]
     Route: 042
     Dates: start: 20090622, end: 20091030
  8. LOMOTIL [Concomitant]
     Indication: DIARRHOEA
     Route: 048
     Dates: start: 20090728
  9. VELCADE [Suspect]
     Route: 042
     Dates: start: 20090622, end: 20090723
  10. RITUXAN [Suspect]
     Indication: DIFFUSE LARGE B-CELL LYMPHOMA
     Route: 042
  11. ALOXI [Concomitant]
     Indication: PREMEDICATION
     Route: 065
     Dates: start: 20090720
  12. DOXORUBICIN HCL [Suspect]
     Indication: DIFFUSE LARGE B-CELL LYMPHOMA
     Route: 042
     Dates: start: 20090702
  13. LORAZEPAM [Concomitant]
     Indication: VOMITING
     Route: 065
     Dates: start: 20090720
  14. LORAZEPAM [Concomitant]
     Indication: NAUSEA
     Route: 065
     Dates: start: 20090720
  15. IMODIUM [Concomitant]
     Indication: DIARRHOEA
     Route: 048
     Dates: start: 20090721
  16. DOXORUBICIN HCL [Suspect]
     Dosage: IN 250 ML OF 5 % DEXTROSE; ON DAY 11 EVERY 21 DAYS (TREATMENT PLANNED FOR 6 CYCLES)
     Route: 042

REACTIONS (5)
  - DECREASED APPETITE [None]
  - DIARRHOEA [None]
  - FATIGUE [None]
  - ACUTE PRERENAL FAILURE [None]
  - VOMITING [None]
